FAERS Safety Report 18932173 (Version 1)
Quarter: 2021Q1

REPORT INFORMATION
  Report Type: Spontaneous
  Country: IT (occurrence: IT)
  Receive Date: 20210224
  Receipt Date: 20210224
  Transmission Date: 20210420
  Serious: Yes (Other)
  Sender: FDA-Public Use
  Company Number: IT-JAZZ-2021-IT-003145

PATIENT
  Age: 62 Year
  Sex: Female

DRUGS (1)
  1. VYXEOS [Suspect]
     Active Substance: CYTARABINE\DAUNORUBICIN
     Indication: ACUTE MYELOID LEUKAEMIA
     Dosage: FIRST INDUCTION CYCLE
     Dates: start: 20190503

REACTIONS (4)
  - Myositis [Recovered/Resolved]
  - Fasciitis [Recovered/Resolved]
  - Arthritis bacterial [Recovered/Resolved]
  - Haemarthrosis [Recovered/Resolved]

NARRATIVE: CASE EVENT DATE: 20190510
